FAERS Safety Report 8507041-3 (Version None)
Quarter: 2012Q3

REPORT INFORMATION
  Report Type: 
  Country: None (occurrence: None)
  Receive Date: 20120703
  Receipt Date: 20120522
  Transmission Date: 20120928
  Serious: Yes (Hospitalization, Other)
  Sender: FDA-Public Use
  Company Number: 2011SP040438

PATIENT
  Age: 56 Year
  Sex: Female

DRUGS (8)
  1. PEG-INTRON [Suspect]
     Indication: HEPATITIS C
     Dosage: 0.4 MCG ; 0.3 MCG
     Dates: start: 20080104, end: 20081003
  2. PEG-INTRON [Suspect]
     Indication: HEPATITIS C
     Dosage: 0.4 MCG ; 0.3 MCG
     Dates: end: 20081007
  3. PEG-INTRON [Suspect]
     Indication: HEPATITIS C
     Dosage: 0.4 MCG ; 0.3 MCG
     Dates: start: 20110817, end: 20120430
  4. PROCRIT [Concomitant]
  5. RIBAVIRIN [Suspect]
     Indication: HEPATITIS C
     Dosage: QD ; QD; 200 MG;QD
     Dates: end: 20091007
  6. RIBAVIRIN [Suspect]
     Indication: HEPATITIS C
     Dosage: QD ; QD; 200 MG;QD
     Dates: start: 20110817, end: 20120403
  7. RIBAVIRIN [Suspect]
     Indication: HEPATITIS C
     Dosage: QD ; QD; 200 MG;QD
     Dates: start: 20080104, end: 20081003
  8. VICTRELIS [Suspect]
     Indication: HEPATITIS C
     Dosage: 800 MG;TID;PO
     Route: 048
     Dates: start: 20110914

REACTIONS (11)
  - NAUSEA [None]
  - ANAEMIA [None]
  - DYSPNOEA [None]
  - ASTHENIA [None]
  - LETHARGY [None]
  - WEIGHT DECREASED [None]
  - HEADACHE [None]
  - FATIGUE [None]
  - CAPSULE PHYSICAL ISSUE [None]
  - RASH [None]
  - DYSGEUSIA [None]
